FAERS Safety Report 5479659-6 (Version None)
Quarter: 2007Q4

REPORT INFORMATION
  Report Type: 
  Country: None (occurrence: None)
  Receive Date: 20071008
  Receipt Date: 20070927
  Transmission Date: 20080405
  Serious: Yes (Other)
  Sender: FDA-Public Use
  Company Number: B0483171A

PATIENT
  Age: 29 Year
  Sex: Male

DRUGS (4)
  1. CETIRIZINE HYDROCHLORIDE [Suspect]
     Indication: DRUG USE FOR UNKNOWN INDICATION
     Route: 048
  2. SALBUTAMOL [Suspect]
     Indication: DRUG USE FOR UNKNOWN INDICATION
  3. VARENICLINE TARTRATE [Suspect]
     Route: 048
  4. LOSARTAN POTASSIUM [Suspect]
     Indication: DRUG USE FOR UNKNOWN INDICATION

REACTIONS (1)
  - CONVULSION [None]
